FAERS Safety Report 9404657 (Version 1)
Quarter: 2013Q3

REPORT INFORMATION
  Report Type: Report from Study
  Country: US (occurrence: US)
  Receive Date: 20130717
  Receipt Date: 20130717
  Transmission Date: 20140515
  Serious: Yes (Other)
  Sender: FDA-Public Use
  Company Number: PHEH2013US015011

PATIENT
  Age: 50 Year
  Sex: Female

DRUGS (2)
  1. EXTAVIA [Suspect]
     Indication: MULTIPLE SCLEROSIS
     Dosage: 0.25 MG, QOD
     Route: 058
  2. EXTAVIA [Suspect]
     Dosage: UNK UKN, UNK
     Route: 058
     Dates: start: 20130711

REACTIONS (1)
  - Rotator cuff syndrome [Unknown]
